FAERS Safety Report 26145493 (Version 1)
Quarter: 2025Q4

REPORT INFORMATION
  Report Type: Spontaneous
  Country: US (occurrence: None)
  Receive Date: 20251210
  Receipt Date: 20251210
  Transmission Date: 20260117
  Serious: Yes (Disabling)
  Sender: FDA-CTU
  Company Number: None

PATIENT
  Age: 67 Year
  Sex: Female
  Weight: 71.1 kg

DRUGS (5)
  1. DULOXETINE [Suspect]
     Active Substance: DULOXETINE
     Indication: Depression
     Dosage: 1 CAPSULE ORAL
     Route: 048
  2. PEPTO-BISMOL [Concomitant]
     Active Substance: BISMUTH SUBSALICYLATE
  3. BAYER ASPIRIN [Concomitant]
     Active Substance: ASPIRIN
  4. XYLITOL [Concomitant]
     Active Substance: XYLITOL
  5. COUGH DROPS [Concomitant]
     Active Substance: MENTHOL

REACTIONS (5)
  - Initial insomnia [None]
  - Insomnia [None]
  - Confusional state [None]
  - Dissociation [None]
  - Aphasia [None]

NARRATIVE: CASE EVENT DATE: 20251110
